FAERS Safety Report 25131348 (Version 1)
Quarter: 2025Q1

REPORT INFORMATION
  Report Type: Spontaneous
  Country: US (occurrence: None)
  Receive Date: 20250327
  Receipt Date: 20250327
  Transmission Date: 20250408
  Serious: No
  Sender: FDA-CTU
  Company Number: None

PATIENT
  Age: 65 Year
  Sex: Male
  Weight: 94.5 kg

DRUGS (3)
  1. INSULIN LISPRO [Suspect]
     Active Substance: INSULIN LISPRO
     Indication: Type 2 diabetes mellitus
     Route: 058
     Dates: start: 20250201, end: 20250317
  2. ENALAPRIL [Concomitant]
     Active Substance: ENALAPRIL
  3. ROSUVASTATIN [Concomitant]
     Active Substance: ROSUVASTATIN

REACTIONS (9)
  - Arthralgia [None]
  - Myalgia [None]
  - Fatigue [None]
  - Headache [None]
  - Restlessness [None]
  - Somnolence [None]
  - Injection site pain [None]
  - Injection site bruising [None]
  - Drug ineffective [None]

NARRATIVE: CASE EVENT DATE: 20250316
